FAERS Safety Report 15110820 (Version 6)
Quarter: 2019Q3

REPORT INFORMATION
  Report Type: Spontaneous
  Country: US (occurrence: US)
  Receive Date: 20180705
  Receipt Date: 20190812
  Transmission Date: 20191004
  Serious: Yes (Other)
  Sender: FDA-Public Use
  Company Number: US-DSJP-DSU-2016-115196

PATIENT

DRUGS (16)
  1. BENICAR [Suspect]
     Active Substance: OLMESARTAN MEDOXOMIL
     Dosage: UNK
     Dates: start: 2012, end: 20141229
  2. DIAZEPAM. [Concomitant]
     Active Substance: DIAZEPAM
     Indication: SEDATIVE THERAPY
     Dosage: 5 MG, AS NEEDED
     Dates: start: 2005
  3. STEROIDS [Suspect]
     Active Substance: UNSPECIFIED INGREDIENT
     Indication: OCULAR HYPERAEMIA
  4. OMEPRAZOLE. [Concomitant]
     Active Substance: OMEPRAZOLE
     Indication: GASTROOESOPHAGEAL REFLUX DISEASE
     Dosage: 20 MG, QD
     Dates: start: 2009
  5. BENICAR HCT [Suspect]
     Active Substance: HYDROCHLOROTHIAZIDE\OLMESARTAN MEDOXOMIL
     Indication: PRODUCT USED FOR UNKNOWN INDICATION
     Dosage: UNK
  6. BENICAR [Suspect]
     Active Substance: OLMESARTAN MEDOXOMIL
     Indication: HYPERTENSION
     Dosage: 40 MG, BID
     Dates: start: 200601, end: 2008
  7. HYOSCYAMINE. [Concomitant]
     Active Substance: HYOSCYAMINE
     Indication: ABDOMINAL PAIN UPPER
     Dosage: 0.125 MG, AS NEEDED
     Dates: start: 2006
  8. TRIBENZOR [Suspect]
     Active Substance: AMLODIPINE BESYLATE\HYDROCHLOROTHIAZIDE\OLMESARTAN MEDOXOMIL
     Dosage: 40-5-12.5 MG, QD
     Route: 048
     Dates: end: 20141229
  9. ZOLPIDEM [Concomitant]
     Active Substance: ZOLPIDEM TARTRATE
     Indication: SLEEP DISORDER
     Dosage: 10 MG, AS NEEDED
     Dates: start: 2007
  10. TRIBENZOR [Suspect]
     Active Substance: AMLODIPINE BESYLATE\HYDROCHLOROTHIAZIDE\OLMESARTAN MEDOXOMIL
     Dosage: 40-5-25 MG, QD
     Route: 048
     Dates: start: 201212, end: 20141017
  11. STEROIDS [Suspect]
     Active Substance: UNSPECIFIED INGREDIENT
     Indication: IRITIS
  12. SIMVASTATIN. [Concomitant]
     Active Substance: SIMVASTATIN
     Indication: BLOOD CHOLESTEROL
     Dosage: 20 MG, QD
     Dates: start: 2009
  13. TRIBENZOR [Suspect]
     Active Substance: AMLODIPINE BESYLATE\HYDROCHLOROTHIAZIDE\OLMESARTAN MEDOXOMIL
     Indication: HYPERTENSION
     Dosage: 20-5-12.5 MG, UNK
     Dates: end: 20141229
  14. TRIBENZOR [Suspect]
     Active Substance: AMLODIPINE BESYLATE\HYDROCHLOROTHIAZIDE\OLMESARTAN MEDOXOMIL
     Dosage: 40-5-12.5 MG, UNK
     Dates: start: 20141017, end: 20141229
  15. STEROIDS [Suspect]
     Active Substance: UNSPECIFIED INGREDIENT
     Indication: EYE PAIN
  16. CLONIDINE HCL [Concomitant]
     Active Substance: CLONIDINE HYDROCHLORIDE
     Indication: HYPERTENSION
     Dosage: 0.1 MG, AS NEEDED
     Dates: start: 2006

REACTIONS (21)
  - Acute kidney injury [Not Recovered/Not Resolved]
  - Iritis [Recovered/Resolved]
  - Oedema [Not Recovered/Not Resolved]
  - Colitis ulcerative [Recovering/Resolving]
  - Gastric ulcer [Recovering/Resolving]
  - Coeliac disease [Recovering/Resolving]
  - Large intestine polyp [Recovering/Resolving]
  - Impaired gastric emptying [Recovered/Resolved]
  - Gastrointestinal haemorrhage [Not Recovered/Not Resolved]
  - Diverticulitis [Recovering/Resolving]
  - Sprue-like enteropathy [Recovered/Resolved]
  - Irritable bowel syndrome [Recovering/Resolving]
  - Gastrooesophageal reflux disease [Recovering/Resolving]
  - Hiatus hernia [Recovering/Resolving]
  - Muscle atrophy [Unknown]
  - Rectal polyp [Recovered/Resolved]
  - Haemorrhoids [Recovering/Resolving]
  - Gastrointestinal angiodysplasia [Recovering/Resolving]
  - Diverticulum [Recovering/Resolving]
  - Large intestinal stenosis [Not Recovered/Not Resolved]
  - Adverse drug reaction [Unknown]

NARRATIVE: CASE EVENT DATE: 20050224
